FAERS Safety Report 20547546 (Version 1)
Quarter: 2022Q1

REPORT INFORMATION
  Report Type: Spontaneous
  Country: US (occurrence: US)
  Receive Date: 20220303
  Receipt Date: 20220303
  Transmission Date: 20220424
  Serious: No
  Sender: FDA-Public Use
  Company Number: US-SA-SAC20220224000778

PATIENT
  Age: 38 Year
  Sex: Female

DRUGS (1)
  1. DUPIXENT [Suspect]
     Active Substance: DUPILUMAB
     Indication: Dermatitis atopic
     Dosage: 300MG OTHER
     Route: 058
     Dates: start: 202110

REACTIONS (6)
  - Product dose omission issue [Unknown]
  - Memory impairment [Unknown]
  - Confusional state [Unknown]
  - Mental disorder [Unknown]
  - Injection site bruising [Recovered/Resolved]
  - Extra dose administered [Unknown]

NARRATIVE: CASE EVENT DATE: 20220208
